FAERS Safety Report 26049703 (Version 2)
Quarter: 2025Q4

REPORT INFORMATION
  Report Type: Report from Study
  Country: ZA (occurrence: ZA)
  Receive Date: 20251115
  Receipt Date: 20251126
  Transmission Date: 20260117
  Serious: Yes (Other)
  Sender: ROCHE
  Company Number: ZA-ROCHE-10000175410

PATIENT
  Age: 81 Year
  Sex: Male

DRUGS (1)
  1. VABYSMO [Suspect]
     Active Substance: FARICIMAB-SVOA
     Indication: Macular degeneration
     Route: 050
     Dates: start: 20240627

REACTIONS (3)
  - Retinal thickening [Not Recovered/Not Resolved]
  - Optical coherence tomography abnormal [Not Recovered/Not Resolved]
  - Visual acuity tests abnormal [Not Recovered/Not Resolved]

NARRATIVE: CASE EVENT DATE: 20250814
